FAERS Safety Report 11657002 (Version 3)
Quarter: 2016Q2

REPORT INFORMATION
  Report Type: Spontaneous
  Country: US (occurrence: US)
  Receive Date: 20151023
  Receipt Date: 20160414
  Transmission Date: 20160815
  Serious: No
  Sender: FDA-Public Use
  Company Number: US-MDT-ADR-2015-02018

PATIENT
  Age: 56 Year
  Sex: Male

DRUGS (10)
  1. BUPIVACAINE. [Suspect]
     Active Substance: BUPIVACAINE
     Dosage: 19.654MG/DAY
     Route: 037
  2. MORPHINE [Suspect]
     Active Substance: MORPHINE
     Dosage: 2.799MG/DAY
     Route: 037
  3. MORPHINE [Suspect]
     Active Substance: MORPHINE
     Dosage: 50.313MG/DAY
     Route: 037
  4. FENTANYL. [Suspect]
     Active Substance: FENTANYL
     Dosage: 1174.8MCG/DAY
     Route: 037
  5. CLONIDINE. [Suspect]
     Active Substance: CLONIDINE
     Dosage: 391.6MCG/DAY
     Route: 037
  6. BACLOFEN. [Suspect]
     Active Substance: BACLOFEN
     Dosage: 313.28MCG/DAY
     Route: 037
  7. BACLOFEN. [Suspect]
     Active Substance: BACLOFEN
     Dosage: 314.46MCG/DAY
     Route: 037
  8. OXYCODONE [Suspect]
     Active Substance: OXYCODONE
     Dosage: 20MG 4 TIMES A DAY
     Route: 048
  9. FENTANYL. [Suspect]
     Active Substance: FENTANYL
     Dosage: 1179.2MCG/DAY
     Route: 037
  10. CLONIDINE. [Suspect]
     Active Substance: CLONIDINE
     Dosage: 393.07MCG/DAY
     Route: 037

REACTIONS (5)
  - Unevaluable event [Unknown]
  - Facial pain [Unknown]
  - General physical health deterioration [Unknown]
  - Panic attack [Unknown]
  - Dry skin [Unknown]
